FAERS Safety Report 19792868 (Version 1)
Quarter: 2021Q3

REPORT INFORMATION
  Report Type: Spontaneous
  Country: FR (occurrence: FR)
  Receive Date: 20210906
  Receipt Date: 20210906
  Transmission Date: 20211014
  Serious: Yes (Other)
  Sender: FDA-Public Use
  Company Number: FR-PFIZER INC-202101094533

PATIENT
  Age: 21 Year
  Sex: Male

DRUGS (7)
  1. COCAINE [Suspect]
     Active Substance: COCAINE
     Dosage: UNK
     Route: 042
  2. KETAMINE [KETAMINE HYDROCHLORIDE] [Suspect]
     Active Substance: KETAMINE HYDROCHLORIDE
     Dosage: UNK
  3. HEROIN [Suspect]
     Active Substance: DIAMORPHINE
     Dosage: UNK
     Route: 042
  4. METHYLENEDIOXYMETHAMPHETAMINE [Suspect]
     Active Substance: MIDOMAFETAMINE
     Dosage: UNK
     Route: 048
  5. VALIUM [Suspect]
     Active Substance: DIAZEPAM
     Dosage: 100 MG, SINGLE
     Route: 048
     Dates: start: 20210112, end: 20210112
  6. XANAX [Suspect]
     Active Substance: ALPRAZOLAM
     Dosage: 3 MG, AS NEEDED
     Route: 048
     Dates: start: 20210112, end: 20210112
  7. METHADONE [Suspect]
     Active Substance: METHADONE HYDROCHLORIDE
     Dosage: 75 MG, 1X/DAY
     Route: 048

REACTIONS (3)
  - Suicidal ideation [Not Recovered/Not Resolved]
  - Drug abuse [Not Recovered/Not Resolved]
  - Poisoning deliberate [Recovering/Resolving]

NARRATIVE: CASE EVENT DATE: 20210112
